FAERS Safety Report 21450208 (Version 1)
Quarter: 2022Q4

REPORT INFORMATION
  Report Type: Report from Study
  Country: US (occurrence: US)
  Receive Date: 20221013
  Receipt Date: 20221013
  Transmission Date: 20230112
  Serious: No
  Sender: FDA-Public Use
  Company Number: US-ABBVIE-4152514

PATIENT
  Sex: Female

DRUGS (4)
  1. SKYRIZI [Suspect]
     Active Substance: RISANKIZUMAB-RZAA
     Indication: Psoriasis
     Route: 058
  2. Moderna [Concomitant]
     Indication: COVID-19 immunisation
     Dosage: 1ST DOSE, ONCE
     Route: 030
     Dates: start: 20210217, end: 20210217
  3. Moderna [Concomitant]
     Indication: COVID-19 immunisation
     Dosage: 2ND DOSE, ONCE
     Route: 030
     Dates: start: 20210929, end: 20210929
  4. Moderna [Concomitant]
     Indication: COVID-19 immunisation
     Dosage: 3RD DOSE, ONCE
     Route: 030
     Dates: start: 20211116, end: 20211116

REACTIONS (2)
  - Therapeutic response shortened [Recovered/Resolved]
  - Skin disorder [Recovered/Resolved]
